FAERS Safety Report 19708028 (Version 1)
Quarter: 2021Q3

REPORT INFORMATION
  Report Type: Spontaneous
  Country: US (occurrence: US)
  Receive Date: 20210817
  Receipt Date: 20210817
  Transmission Date: 20211014
  Serious: Yes (Hospitalization)
  Sender: FDA-Public Use
  Company Number: US-ASTRAZENECA-2021A674799

PATIENT
  Sex: Female
  Weight: 64.9 kg

DRUGS (1)
  1. BEVESPI AEROSPHERE [Suspect]
     Active Substance: FORMOTEROL FUMARATE\GLYCOPYRROLATE
     Indication: DYSPNOEA
     Dosage: 9/4.8 NG/ML 2 PUFFS TWICE DAILY
     Route: 055

REACTIONS (3)
  - Vulvovaginal mycotic infection [Unknown]
  - Illness [Unknown]
  - Fungal infection [Not Recovered/Not Resolved]
